FAERS Safety Report 5609617-X (Version None)
Quarter: 2008Q1

REPORT INFORMATION
  Report Type: 
  Country: None (occurrence: None)
  Receive Date: 20080131
  Receipt Date: 20080128
  Transmission Date: 20080703
  Serious: Yes (Other)
  Sender: FDA-Public Use
  Company Number: A0705581A

PATIENT
  Age: 86 Year
  Sex: Female

DRUGS (9)
  1. ADVAIR DISKUS 100/50 [Suspect]
     Indication: ASTHMA
     Dosage: 1PUFF TWICE PER DAY
     Route: 055
     Dates: start: 20030101
  2. THYROID TAB [Concomitant]
  3. PLAVIX [Concomitant]
  4. LIPITOR [Concomitant]
  5. TOPROL-XL [Concomitant]
  6. OCUVITE [Concomitant]
  7. ZETIA [Concomitant]
  8. COQ10 [Concomitant]
  9. VISINE EYE DROPS [Concomitant]

REACTIONS (9)
  - BLEPHAROSPASM [None]
  - BLINDNESS [None]
  - DRY EYE [None]
  - ERYTHEMA OF EYELID [None]
  - EYE PAIN [None]
  - EYE SWELLING [None]
  - EYELID OEDEMA [None]
  - HYPERSENSITIVITY [None]
  - LOCAL SWELLING [None]
